FAERS Safety Report 11618989 (Version 1)
Quarter: 2015Q4

REPORT INFORMATION
  Report Type: Spontaneous
  Country: BR (occurrence: BR)
  Receive Date: 20151012
  Receipt Date: 20151012
  Transmission Date: 20160304
  Serious: Yes (Other)
  Sender: FDA-Public Use
  Company Number: BR-TORRENT-00003144

PATIENT
  Age: 45 Year
  Sex: Female
  Weight: 80 kg

DRUGS (5)
  1. RESPIDON [Suspect]
     Active Substance: RISPERIDONE
     Indication: PRODUCT USED FOR UNKNOWN INDICATION
     Dosage: ONCE DAILY/ ORAL
     Route: 048
     Dates: start: 201509
  2. RIVOTRIL [Concomitant]
     Active Substance: CLONAZEPAM
     Indication: BIPOLAR DISORDER
     Dosage: ONCE DAILY/ ORAL
     Route: 048
     Dates: start: 2013
  3. CARBAMAZEPINE. [Concomitant]
     Active Substance: CARBAMAZEPINE
     Indication: BIPOLAR DISORDER
     Dosage: CARBAMAZEPINE 200 MG FOUR TIMES DAILY/ ORAL
     Route: 048
  4. FLUOXETINE [Concomitant]
     Active Substance: FLUOXETINE HYDROCHLORIDE
     Indication: BIPOLAR DISORDER
     Dosage: DOSE NUMBER IS UNKNOWN /TWICE DAILY/ ORAL
     Route: 048
  5. LITHIUM. [Concomitant]
     Active Substance: LITHIUM
     Indication: BIPOLAR DISORDER
     Dosage: LITHIUM 300 MG THREE TIMES DAILY/ ORAL
     Route: 048
     Dates: start: 1995

REACTIONS (2)
  - Depressed mood [Not Recovered/Not Resolved]
  - Suicidal ideation [Not Recovered/Not Resolved]

NARRATIVE: CASE EVENT DATE: 20150928
